FAERS Safety Report 8005076-0 (Version None)
Quarter: 2011Q4

REPORT INFORMATION
  Report Type: 
  Country: None (occurrence: None)
  Receive Date: 20111223
  Receipt Date: 20111214
  Transmission Date: 20120403
  Serious: Yes (Hospitalization, Other)
  Sender: FDA-Public Use
  Company Number: US-PURDUE-USA-2011-0079848

PATIENT
  Sex: Male

DRUGS (1)
  1. OXYCONTIN [Suspect]
     Indication: PRODUCT USED FOR UNKNOWN INDICATION

REACTIONS (2)
  - TRANSIENT ISCHAEMIC ATTACK [None]
  - CONVULSION [None]
